FAERS Safety Report 8905724 (Version 1)
Quarter: 2012Q4

REPORT INFORMATION
  Report Type: 
  Country: DE (occurrence: DE)
  Receive Date: 20121113
  Receipt Date: 20121113
  Transmission Date: 20130627
  Serious: Yes (Other)
  Sender: FDA-Public Use
  Company Number: DE-MYLANLABS-2012S1022658

PATIENT
  Age: 0 Year
  Sex: Female
  Weight: 2.55 kg

DRUGS (2)
  1. BISOPROLOL [Suspect]
     Dosage: 5 [mg/d ]
     Route: 064
  2. FEMIBION [Concomitant]
     Indication: PROPHYLAXIS OF NEURAL TUBE DEFECT
     Dosage: 0-41.1 GW, ALSO PRECONCEPTIONAL
     Route: 064

REACTIONS (3)
  - Atrial septal defect [Unknown]
  - Exposure during pregnancy [Recovered/Resolved]
  - Small for dates baby [Unknown]
